FAERS Safety Report 20009821 (Version 4)
Quarter: 2022Q1

REPORT INFORMATION
  Report Type: Report from Study
  Country: AU (occurrence: AU)
  Receive Date: 20211028
  Receipt Date: 20220106
  Transmission Date: 20220424
  Serious: Yes (Life-Threatening, Hospitalization, Other)
  Sender: FDA-Public Use
  Company Number: AU-BRISTOL-MYERS SQUIBB COMPANY-BMS-2021-099033

PATIENT
  Age: 64 Year
  Sex: Male

DRUGS (23)
  1. NIVOLUMAB [Suspect]
     Active Substance: NIVOLUMAB
     Indication: Malignant melanoma
     Dosage: 108 MILLIGRAM
     Route: 042
     Dates: start: 20210921, end: 20210921
  2. IPILIMUMAB [Suspect]
     Active Substance: IPILIMUMAB
     Indication: Malignant melanoma
     Dosage: 324 MILLIGRAM
     Route: 042
     Dates: start: 20210921, end: 20210921
  3. DENOSUMAB [Suspect]
     Active Substance: DENOSUMAB
     Indication: Malignant melanoma
     Dosage: 120 MILLIGRAM
     Route: 058
     Dates: start: 20210921, end: 20210921
  4. GABAPENTIN [Concomitant]
     Active Substance: GABAPENTIN
     Indication: Musculoskeletal pain
     Dosage: 300 MILLIGRAM, TID
     Route: 048
     Dates: start: 202108
  5. GABAPENTIN [Concomitant]
     Active Substance: GABAPENTIN
     Dosage: 900 MILLIGRAM
     Route: 048
     Dates: start: 20210923, end: 20210924
  6. GABAPENTIN [Concomitant]
     Active Substance: GABAPENTIN
     Dosage: 600 UNK
     Route: 048
     Dates: start: 20210927, end: 20210927
  7. ATORVASTATIN [Concomitant]
     Active Substance: ATORVASTATIN
     Indication: Hyperlipidaemia
     Dosage: 80 MILLIGRAM (DAILY)
     Route: 048
     Dates: start: 2011
  8. ALBUTEROL SULFATE [Concomitant]
     Active Substance: ALBUTEROL SULFATE
     Indication: Dyspnoea exertional
     Dosage: 2 PRN  (ORAL INHALATION)
     Route: 065
     Dates: start: 202106
  9. PANADOL [Concomitant]
     Active Substance: ACETAMINOPHEN
     Indication: Osteoarthritis
     Dosage: 1 GRAM, PRN
     Route: 048
     Dates: start: 1981
  10. NALOXONE HYDROCHLORIDE\OXYCODONE HYDROCHLORIDE [Concomitant]
     Active Substance: NALOXONE HYDROCHLORIDE\OXYCODONE HYDROCHLORIDE
     Indication: Musculoskeletal pain
     Dosage: 30 MILLIGRAM, BID
     Route: 048
     Dates: start: 20210920
  11. NALOXONE HYDROCHLORIDE\OXYCODONE HYDROCHLORIDE [Concomitant]
     Active Substance: NALOXONE HYDROCHLORIDE\OXYCODONE HYDROCHLORIDE
     Dosage: UNK (15MG MRNG, 20MG NOCTE)
     Route: 048
     Dates: start: 20210816, end: 202109
  12. NALOXONE HYDROCHLORIDE\OXYCODONE HYDROCHLORIDE [Concomitant]
     Active Substance: NALOXONE HYDROCHLORIDE\OXYCODONE HYDROCHLORIDE
     Dosage: 15 MG, 7.5 MG
     Route: 048
     Dates: start: 20210923, end: 20210925
  13. OXYCODONE [Concomitant]
     Active Substance: OXYCODONE
     Indication: Musculoskeletal pain
     Dosage: 5 MILLIGRAM, PRN (4/24)
     Route: 048
     Dates: start: 20210816, end: 20210922
  14. OXYCODONE [Concomitant]
     Active Substance: OXYCODONE
     Dosage: 10 MILLIGRAM, PRN  (4/24)
     Route: 048
     Dates: start: 20210922
  15. OXYCODONE [Concomitant]
     Active Substance: OXYCODONE
     Dosage: 5 MILLIGRAM, PRN (6/24)
     Route: 048
     Dates: start: 20210928
  16. ASTRAZENECA COVID-19 VACCINE [Concomitant]
     Active Substance: AZD-1222
     Indication: Prophylaxis
     Dosage: UNK (START DOSE)
     Route: 030
     Dates: start: 20210826
  17. PANTOPRAZOLE [Concomitant]
     Active Substance: PANTOPRAZOLE
     Indication: Abdominal pain upper
     Dosage: 20 MILLIGRAM (DAILY)
     Route: 048
     Dates: start: 202106
  18. ESCITALOPRAM [Concomitant]
     Active Substance: ESCITALOPRAM OXALATE
     Indication: Anxiety
     Dosage: 10 MILLIGRAM (DAILY)
     Route: 048
     Dates: start: 2011
  19. ESCITALOPRAM [Concomitant]
     Active Substance: ESCITALOPRAM OXALATE
     Dosage: 20MG STAT
     Route: 048
     Dates: start: 20210928, end: 20210928
  20. IRBESARTAN [Concomitant]
     Active Substance: IRBESARTAN
     Indication: Hypertension
     Dosage: 300 MILLIGRAM (DAILY)
     Route: 048
     Dates: start: 2011
  21. MOVICOL [Concomitant]
     Active Substance: POLYETHYLENE GLYCOL 3350\POTASSIUM CHLORIDE\SODIUM BICARBONATE\SODIUM CHLORIDE
     Indication: Constipation
     Dosage: 3350, 1 SACHET BD
     Route: 048
     Dates: start: 20210924, end: 20210925
  22. CALCIUM CARBONATE [Concomitant]
     Active Substance: CALCIUM CARBONATE
     Indication: Hypocalcaemia
     Dosage: 600 MILLIGRAM
     Route: 048
     Dates: start: 20210928
  23. SODIUM PHOSPHATE [Concomitant]
     Active Substance: SODIUM PHOSPHATE
     Indication: Hypophosphataemia
     Dosage: 500 MILLIGRAM, BID
     Route: 048
     Dates: start: 20210928

REACTIONS (6)
  - Immune-mediated dermatitis [Recovered/Resolved]
  - Acute kidney injury [Recovered/Resolved with Sequelae]
  - Cholecystitis [Unknown]
  - Pyrexia [Unknown]
  - Liver function test abnormal [Unknown]
  - Immune-mediated nephritis [Recovering/Resolving]

NARRATIVE: CASE EVENT DATE: 20210927
